FAERS Safety Report 8883598 (Version 2)
Quarter: 2013Q2

REPORT INFORMATION
  Report Type: Report from Study
  Country: JP (occurrence: JP)
  Receive Date: 20121102
  Receipt Date: 20130514
  Transmission Date: 20140414
  Serious: Yes (Other)
  Sender: FDA-Public Use
  Company Number: JP-VERTEX PHARMACEUTICAL INC.-2012-023922

PATIENT
  Age: 53 Year
  Sex: Male

DRUGS (11)
  1. VX-950 (TELAPREVIR) [Suspect]
     Indication: CHRONIC HEPATITIS C
     Dosage: 1500 MG, QD
     Route: 048
     Dates: start: 20120717, end: 20121004
  2. RIBAVIRIN [Suspect]
     Indication: CHRONIC HEPATITIS C
     Dosage: 600 MG, QD
     Route: 048
     Dates: start: 20120717, end: 20120927
  3. RIBAVIRIN [Suspect]
     Dosage: 400 MG, QD
     Route: 048
     Dates: start: 20120928
  4. PEGINTERFERON ALFA-2B [Suspect]
     Indication: CHRONIC HEPATITIS C
     Dosage: 1.5 ?G/KG, QW
     Route: 058
     Dates: start: 20120717
  5. SUNRYTHM [Concomitant]
     Dosage: 150 MG, QD
     Route: 048
  6. HERBESSER R [Concomitant]
     Dosage: 200 MG, QD
     Route: 048
  7. SELBEX [Concomitant]
     Dosage: 150 MG, QD
     Route: 048
  8. LAC-B [Concomitant]
     Dosage: 3 G, QD
     Route: 048
  9. URALYT [Concomitant]
     Dosage: 6 TABLETS, QD
     Route: 048
  10. LENDORMIN DAINIPPO [Concomitant]
     Dosage: 0.25 MG, QD PRN
     Route: 048
  11. URSO [Concomitant]
     Dosage: 600 MG, QD
     Route: 048
     Dates: end: 20120802

REACTIONS (1)
  - Hydronephrosis [Recovered/Resolved]
